FAERS Safety Report 9867962 (Version 2)
Quarter: 2014Q1

REPORT INFORMATION
  Report Type: Spontaneous
  Country: US (occurrence: US)
  Receive Date: 20140204
  Receipt Date: 20140313
  Transmission Date: 20141002
  Serious: Yes (Other)
  Sender: FDA-Public Use
  Company Number: US-PFIZER INC-2014029605

PATIENT
  Age: 9 Year
  Sex: Male
  Weight: 27.21 kg

DRUGS (1)
  1. GENOTROPIN [Suspect]
     Indication: DWARFISM
     Dosage: 1 MG, 1X/DAY
     Route: 058
     Dates: start: 20140107

REACTIONS (1)
  - Bronchitis [Unknown]
